FAERS Safety Report 8999825 (Version 2)
Quarter: 2013Q1

REPORT INFORMATION
  Report Type: Spontaneous
  Country: US (occurrence: US)
  Receive Date: 20130102
  Receipt Date: 20130121
  Transmission Date: 20140127
  Serious: Yes (Hospitalization)
  Sender: FDA-Public Use
  Company Number: US-009507513-1212USA011060

PATIENT
  Sex: Female

DRUGS (1)
  1. ZOCOR [Suspect]
     Indication: HYPERTENSION
     Dosage: 80 MG, QD
     Route: 048

REACTIONS (4)
  - Muscle disorder [Recovering/Resolving]
  - Muscle operation [Recovering/Resolving]
  - Movement disorder [Recovering/Resolving]
  - Muscular weakness [Recovering/Resolving]
